FAERS Safety Report 7915110-1 (Version None)
Quarter: 2011Q4

REPORT INFORMATION
  Report Type: 
  Country: None (occurrence: None)
  Receive Date: 20111115
  Receipt Date: 20111110
  Transmission Date: 20120403
  Serious: Yes (Death, Hospitalization, Other)
  Sender: FDA-Public Use
  Company Number: US-GENZYME-MOZO-1000579

PATIENT
  Sex: Male
  Weight: 80.1 kg

DRUGS (71)
  1. ACETAMINOPHEN [Concomitant]
     Indication: PYREXIA
     Dosage: 650 MG, QD
     Route: 048
     Dates: start: 20110830, end: 20111017
  2. CEFEPIME [Concomitant]
     Indication: PROPHYLAXIS
     Dosage: 50 ML, TID
     Route: 042
     Dates: start: 20110831, end: 20110907
  3. FUROSEMIDE [Concomitant]
     Indication: HYPERTENSION
     Dosage: 20 MG, QD
     Route: 042
     Dates: start: 20110831, end: 20111013
  4. LORAZEPAM [Concomitant]
     Indication: PREMEDICATION
     Dosage: 1 MG, QD
     Route: 042
     Dates: start: 20110926, end: 20110926
  5. DECITABINE [Concomitant]
     Indication: ACUTE MYELOID LEUKAEMIA
     Dosage: 20 MG/M2, UNK
     Route: 042
     Dates: start: 20110902, end: 20111008
  6. ALBUTEROL [Concomitant]
     Dosage: 3 ML, QD
     Route: 055
     Dates: start: 20110908, end: 20110908
  7. FUROSEMIDE [Concomitant]
     Indication: OEDEMA
     Dosage: 20 MG, QD
     Route: 042
     Dates: start: 20110904, end: 20110909
  8. ALLOPURINOL [Concomitant]
     Indication: PRODUCT USED FOR UNKNOWN INDICATION
     Dosage: 200 MG, QD
     Route: 048
     Dates: start: 20110831, end: 20110916
  9. METOPROLOL SUCCINATE [Concomitant]
     Indication: TACHYPNOEA
     Dosage: 5 MG, QD
     Route: 042
     Dates: start: 20110929, end: 20111004
  10. HYDROMORPHONE HCL [Concomitant]
     Indication: PAIN
     Dosage: 1 MG, QD
     Route: 042
     Dates: start: 20110911, end: 20110911
  11. POTASSIUM CHLORIDE [Concomitant]
     Indication: SUPPLEMENTATION THERAPY
     Dosage: 60 MEQ, QD
     Route: 048
     Dates: start: 20110918, end: 20111005
  12. POTASSIUM CHLORIDE [Concomitant]
     Dosage: 20 MEQ, BID
     Route: 042
     Dates: start: 20110920, end: 20111015
  13. POTASSIUM CHLORIDE [Concomitant]
     Dosage: 40 MEQ, PRN
     Route: 048
     Dates: start: 20110924, end: 20111007
  14. POTASSIUM CHLORIDE [Concomitant]
     Dosage: 10 MEQ, PRN
     Route: 048
     Dates: start: 20111004, end: 20111011
  15. ACETYLCYSTEINE [Concomitant]
     Indication: SUPPLEMENTATION THERAPY
     Dosage: 600 MG, QID
     Route: 048
     Dates: start: 20110930, end: 20111001
  16. MULTI-VITAMIN [Concomitant]
     Indication: SUPPLEMENTATION THERAPY
     Dosage: 1 UNK, QD
     Route: 048
     Dates: start: 20110930, end: 20111017
  17. MOZOBIL [Suspect]
     Indication: HAEMATOPOIETIC STEM CELL MOBILISATION
  18. METRONIDAZOLE [Concomitant]
     Dosage: 500 MG, TID
     Route: 042
     Dates: start: 20110930, end: 20110930
  19. ACETAMINOPHEN [Concomitant]
     Indication: PROPHYLAXIS
     Dosage: 975 MG, QD
     Route: 048
     Dates: start: 20110830, end: 20110830
  20. ACETAMINOPHEN [Concomitant]
     Indication: HEADACHE
     Dosage: 650 MG, QD
     Route: 048
     Dates: start: 20110901, end: 20110925
  21. FUROSEMIDE [Concomitant]
     Dosage: 40 MG, QD
     Route: 042
     Dates: start: 20110914, end: 20111016
  22. FUROSEMIDE [Concomitant]
     Dosage: 40 UNK, BID
     Dates: start: 20111007, end: 20111017
  23. ALLOPURINOL [Concomitant]
     Indication: ACIDOSIS
     Dosage: 300 MG, QD
     Route: 048
     Dates: start: 20110929, end: 20110930
  24. LIDOCAINE [Concomitant]
     Indication: BIOPSY BONE MARROW
     Dosage: 0.5 ML, QD
     Dates: start: 20110901, end: 20110901
  25. HYDROCORTISONE [Concomitant]
     Indication: DYSPNOEA
     Dosage: 50 MG, QD
     Route: 042
     Dates: start: 20110901, end: 20111017
  26. DIPHENHYDRAMINE HCL [Concomitant]
     Indication: PROPHYLAXIS
     Dosage: 25 MG, TID
     Route: 048
     Dates: start: 20110901, end: 20110905
  27. HEPARIN LOCK-FLUSH [Concomitant]
     Indication: INTRAVENOUS CATHETER MANAGEMENT
     Dosage: 30 U, QID
     Route: 042
     Dates: start: 20110901, end: 20110910
  28. VANCOMYCIN [Concomitant]
     Dosage: 250 MG, QID
     Route: 048
     Dates: start: 20110930, end: 20111012
  29. BIOTENE [Concomitant]
     Indication: PROPHYLAXIS
     Dosage: 15 ML, TID
     Route: 048
     Dates: start: 20110928, end: 20111017
  30. METRONIDAZOLE [Concomitant]
     Indication: DIARRHOEA
     Dosage: 500 MG, TID
     Route: 042
     Dates: start: 20110830, end: 20110831
  31. ALBUTEROL [Concomitant]
     Indication: DYSPNOEA
     Dosage: 3 ML, QID
     Route: 055
     Dates: start: 20110831, end: 20111012
  32. FUROSEMIDE [Concomitant]
     Indication: PROPHYLAXIS
     Dosage: 40 MG, QD
     Route: 042
     Dates: start: 20110910, end: 20111014
  33. RAMIPRIL [Concomitant]
     Indication: CORONARY ARTERY DISEASE
     Dosage: 5 MG, QD
     Route: 048
     Dates: start: 20110901, end: 20110929
  34. MAGNESIUM SULFATE [Concomitant]
     Indication: HYPOMAGNESAEMIA
     Dosage: 4 G, QD
     Route: 042
     Dates: start: 20110830, end: 20111016
  35. MAGNESIUM SULFATE [Concomitant]
     Dosage: 2 G, QD
     Route: 042
     Dates: start: 20110901, end: 20111015
  36. IPRATROPIUM BROMIDE [Concomitant]
     Indication: LUNG DISORDER
     Dosage: 2.5 ML, QD
     Route: 055
     Dates: start: 20110908, end: 20111017
  37. ALBUTEROL [Concomitant]
     Dosage: 3 ML, QD
     Route: 055
     Dates: start: 20110919, end: 20110919
  38. RANEXA [Concomitant]
     Indication: CORONARY ARTERY DISEASE
     Dosage: 500 MG, BID
     Route: 048
     Dates: start: 20110831, end: 20110902
  39. ISOSORBIDE MONONITRATE [Concomitant]
     Indication: PROPHYLAXIS
     Dosage: 120 MG, QD
     Route: 048
     Dates: start: 20110901, end: 20110922
  40. DIPHENHYDRAMINE HCL [Concomitant]
     Indication: CHILLS
     Dosage: 25 MG, QD
     Route: 042
     Dates: start: 20110904, end: 20110905
  41. VANCOMYCIN [Concomitant]
     Indication: THROMBOPHLEBITIS
     Dosage: 1250 MG, BID
     Route: 042
     Dates: start: 20110905, end: 20110906
  42. DIGOXIN [Concomitant]
     Dosage: 100 MG, QD
     Route: 048
     Dates: start: 20111001, end: 20111014
  43. PIPERACILLIN W [Concomitant]
     Indication: DIARRHOEA
     Dosage: 4.5 G, QD
     Route: 048
     Dates: start: 20110830, end: 20110830
  44. METRONIDAZOLE [Concomitant]
     Dosage: 500 MG, TID
     Route: 048
     Dates: start: 20110928, end: 20110930
  45. PHYTONADIONE [Concomitant]
     Indication: PROPHYLAXIS
     Dosage: 5 MG, PRN
     Route: 042
     Dates: start: 20110830, end: 20110903
  46. PHYTONADIONE [Concomitant]
     Dosage: 10 MG, QD
     Route: 048
     Dates: start: 20111001, end: 20111001
  47. LOPERAMIDE HCL [Concomitant]
     Indication: DIARRHOEA
     Dosage: 2 MG, QD
     Route: 048
     Dates: start: 20110901, end: 20110901
  48. METOPROLOL SUCCINATE [Concomitant]
     Indication: HYPERTENSION
     Dosage: 100 MG, QD
     Route: 048
     Dates: start: 20110924, end: 20110929
  49. VANCOMYCIN [Concomitant]
     Indication: CELLULITIS
     Dosage: 1250 MG, BID
     Route: 042
     Dates: start: 20110908, end: 20110914
  50. POSACONAZOLE [Concomitant]
     Indication: INFECTION PROPHYLAXIS
     Dosage: 200 MG, TID
     Route: 048
     Dates: start: 20110908, end: 20110916
  51. POTASSIUM CHLORIDE [Concomitant]
     Dosage: 20 MEQ, PRN
     Route: 048
     Dates: start: 20110920, end: 20111003
  52. MOZOBIL [Suspect]
     Indication: ACUTE MYELOID LEUKAEMIA
     Dosage: 46.6 MG, UNK
     Route: 042
     Dates: start: 20110902, end: 20111008
  53. ACETAMINOPHEN [Concomitant]
     Dosage: 325 MG, QD
     Route: 048
     Dates: start: 20110905, end: 20111017
  54. IPRATROPIUM BROMIDE [Concomitant]
     Indication: WHEEZING
     Dosage: 2.5 ML, QD
     Route: 055
     Dates: start: 20110830, end: 20110922
  55. CEFEPIME [Concomitant]
     Indication: PYREXIA
     Dosage: 2 G, BID
     Route: 042
     Dates: start: 20110929, end: 20110930
  56. RANEXA [Concomitant]
     Dosage: 1000 MG, BID
     Route: 048
     Dates: start: 20110902, end: 20110922
  57. SODIUM CHLORIDE [Concomitant]
     Indication: INTRAVENOUS CATHETER MANAGEMENT
     Dosage: 10 ML, QD
     Route: 042
     Dates: start: 20110901, end: 20110922
  58. ROSUVASTATIN [Concomitant]
     Indication: PRODUCT USED FOR UNKNOWN INDICATION
     Dosage: 10 MG, QD
     Route: 048
     Dates: start: 20110901, end: 20111017
  59. ISOSORBIDE MONONITRATE [Concomitant]
     Indication: CHEST PAIN
     Dosage: 120 MG, QD
     Route: 048
     Dates: start: 20110924, end: 20110929
  60. METOPROLOL SUCCINATE [Concomitant]
     Indication: CORONARY ARTERY DISEASE
     Dosage: 100 MG, QD
     Route: 048
     Dates: start: 20110901, end: 20110922
  61. DIGOXIN [Concomitant]
     Indication: TACHYPNOEA
     Dosage: 500 MG, QD
     Route: 048
     Dates: start: 20110929, end: 20110929
  62. DIGOXIN [Concomitant]
     Indication: ATRIAL FIBRILLATION
     Dosage: 250 MG, BID
     Route: 042
     Dates: start: 20110930, end: 20110930
  63. GASTROGRAFIN [Concomitant]
     Indication: COMPUTERISED TOMOGRAM ABDOMEN
     Dosage: 15 ML, QD
     Route: 048
     Dates: start: 20110930, end: 20110930
  64. PHYTONADIONE [Concomitant]
     Dosage: 1 MG, QD
     Route: 042
     Dates: start: 20110901, end: 20111010
  65. MAGNESIUM SULFATE [Concomitant]
     Dosage: 2 G, QD
     Route: 042
     Dates: start: 20110924, end: 20110925
  66. FUROSEMIDE [Concomitant]
     Dosage: 40 MG, QD
     Route: 048
     Dates: start: 20110925, end: 20110929
  67. METOPROLOL SUCCINATE [Concomitant]
     Dosage: 25 MG, QID
     Route: 048
     Dates: start: 20110930, end: 20111007
  68. METOPROLOL SUCCINATE [Concomitant]
     Dosage: 50 MG, QID
     Route: 048
     Dates: start: 20111007, end: 20111017
  69. HYDROMORPHONE HCL [Concomitant]
     Dosage: 0.5 MG, UNK
     Route: 042
     Dates: start: 20110911, end: 20110912
  70. POTASSIUM CHLORIDE [Concomitant]
     Dosage: 10 MEQ, QD
     Route: 042
     Dates: start: 20111002, end: 20111002
  71. MEROPENEM [Concomitant]
     Indication: FEBRILE NEUTROPENIA
     Dosage: 500 MG, QID
     Route: 042
     Dates: start: 20110930, end: 20111017

REACTIONS (35)
  - TACHYPNOEA [None]
  - RASH ERYTHEMATOUS [None]
  - MENTAL STATUS CHANGES [None]
  - MUSCLE HAEMORRHAGE [None]
  - BACK PAIN [None]
  - HYPOXIA [None]
  - CLOSTRIDIUM DIFFICILE COLITIS [None]
  - PHLEBITIS [None]
  - ACQUIRED DIAPHRAGMATIC EVENTRATION [None]
  - DYSPEPSIA [None]
  - DIZZINESS [None]
  - RESPIRATORY FAILURE [None]
  - LACTIC ACIDOSIS [None]
  - DEPRESSION [None]
  - TACHYCARDIA [None]
  - DELIRIUM [None]
  - CHILLS [None]
  - PLEURAL EFFUSION [None]
  - PAIN IN EXTREMITY [None]
  - CONSTIPATION [None]
  - INSOMNIA [None]
  - PYREXIA [None]
  - STREPTOCOCCAL BACTERAEMIA [None]
  - PULMONARY OEDEMA [None]
  - PRODUCTIVE COUGH [None]
  - NAUSEA [None]
  - HYPOAESTHESIA [None]
  - DEEP VEIN THROMBOSIS [None]
  - POST-TRAUMATIC PAIN [None]
  - GENERALISED OEDEMA [None]
  - HALLUCINATION [None]
  - OEDEMA PERIPHERAL [None]
  - HEPATOMEGALY [None]
  - ARTHRALGIA [None]
  - PNEUMONIA [None]
